FAERS Safety Report 6301441-8 (Version None)
Quarter: 2009Q3

REPORT INFORMATION
  Report Type: 
  Country: None (occurrence: None)
  Receive Date: 20090806
  Receipt Date: 20090806
  Transmission Date: 20100115
  Serious: Yes (Hospitalization)
  Sender: FDA-Public Use
  Company Number: None

PATIENT
  Sex: Female
  Weight: 72.5755 kg

DRUGS (4)
  1. LEXAPRO [Suspect]
     Indication: ANXIETY
     Dosage: 10MG DAILY MOUTH
     Route: 048
     Dates: start: 20090101, end: 20090622
  2. MIRCETTE [Concomitant]
  3. SPIRONOLACTONE [Concomitant]
  4. SYNTHROID [Concomitant]

REACTIONS (2)
  - APHASIA [None]
  - CLONUS [None]
